FAERS Safety Report 6872217-8 (Version None)
Quarter: 2010Q3

REPORT INFORMATION
  Report Type: 
  Country: None (occurrence: None)
  Receive Date: 20100723
  Receipt Date: 20100401
  Transmission Date: 20110219
  Serious: Yes (Hospitalization)
  Sender: FDA-Public Use
  Company Number: PHHY2010NL44414

PATIENT
  Age: 25 Year
  Sex: Female

DRUGS (3)
  1. TASIGNA [Suspect]
  2. SPRYCEL [Suspect]
  3. CHEMOTHERAPEUTICS NOS [Suspect]

REACTIONS (3)
  - COMA [None]
  - HEADACHE [None]
  - STEM CELL TRANSPLANT [None]
